FAERS Safety Report 24985750 (Version 1)
Quarter: 2025Q1

REPORT INFORMATION
  Report Type: Spontaneous
  Country: US (occurrence: None)
  Receive Date: 20250219
  Receipt Date: 20250219
  Transmission Date: 20250409
  Serious: Yes (Hospitalization)
  Sender: FDA-CTU
  Company Number: None

PATIENT
  Sex: Male

DRUGS (11)
  1. REVLIMID [Suspect]
     Active Substance: LENALIDOMIDE
     Indication: Plasma cell myeloma
     Dosage: OTHER QUANTITY : TAKE 1 CAPSULE;?FREQUENCY : 3 TIMES A WEEK;?
     Route: 048
     Dates: start: 20230810
  2. ACETAMINOPHE [Concomitant]
  3. ACYCLOVIR [Concomitant]
     Active Substance: ACYCLOVIR
  4. ASCORBIC ACD [Concomitant]
  5. CARVEDILOL [Concomitant]
     Active Substance: CARVEDILOL
  6. COLESTIPOL [Concomitant]
     Active Substance: COLESTIPOL
  7. ELIQUIS [Concomitant]
     Active Substance: APIXABAN
  8. ENTRESTO [Concomitant]
     Active Substance: SACUBITRIL\VALSARTAN
  9. FINASTERIDE [Concomitant]
     Active Substance: FINASTERIDE
  10. FUROSEMIDE [Concomitant]
     Active Substance: FUROSEMIDE
  11. GUAIFENESIN [Concomitant]
     Active Substance: GUAIFENESIN

REACTIONS (6)
  - Pneumonia [None]
  - Fall [None]
  - Back pain [None]
  - Therapy interrupted [None]
  - General physical health deterioration [None]
  - Eye disorder [None]
